FAERS Safety Report 17185534 (Version 1)
Quarter: 2019Q4

REPORT INFORMATION
  Report Type: Spontaneous
  Country: US (occurrence: US)
  Receive Date: 20191220
  Receipt Date: 20191220
  Transmission Date: 20200122
  Serious: Yes (Life-Threatening, Hospitalization)
  Sender: FDA-Public Use
  Company Number: US-MYLANLABS-2019M1126647

PATIENT
  Age: 44 Year
  Sex: Female

DRUGS (1)
  1. NALOXONE [Suspect]
     Active Substance: NALOXONE
     Indication: DRUG THERAPY
     Dosage: 0.5 MILLIGRAM
     Route: 042

REACTIONS (2)
  - Muscle rigidity [Recovered/Resolved]
  - Respiratory failure [Recovered/Resolved]
